FAERS Safety Report 21179500 (Version 2)
Quarter: 2022Q3

REPORT INFORMATION
  Report Type: Spontaneous
  Country: US (occurrence: US)
  Receive Date: 20220805
  Receipt Date: 20220826
  Transmission Date: 20221026
  Serious: No
  Sender: FDA-Public Use
  Company Number: US-Calliditas-2022CAL00248

PATIENT
  Age: 32 Year
  Sex: Female

DRUGS (6)
  1. TARPEYO [Suspect]
     Active Substance: BUDESONIDE
     Indication: Haematuria
     Dosage: 16 MG (4 MG CAPSULES) ONCE DAILY
     Route: 048
     Dates: start: 20220715
  2. AMLODIPINE [Concomitant]
     Active Substance: AMLODIPINE BESYLATE
     Dates: start: 2018, end: 20220808
  3. NIFEDIPINE [Concomitant]
     Active Substance: NIFEDIPINE
     Dates: start: 20220809
  4. CHOLECALCIFEROL [Concomitant]
     Active Substance: CHOLECALCIFEROL
  5. LISINOPRIL [Concomitant]
     Active Substance: LISINOPRIL
  6. SPIRONOLACTONE [Concomitant]
     Active Substance: SPIRONOLACTONE

REACTIONS (4)
  - Dizziness [Not Recovered/Not Resolved]
  - Fatigue [Not Recovered/Not Resolved]
  - Peripheral swelling [Not Recovered/Not Resolved]
  - Peripheral swelling [Not Recovered/Not Resolved]

NARRATIVE: CASE EVENT DATE: 20220716
